FAERS Safety Report 7692681-4 (Version None)
Quarter: 2011Q3

REPORT INFORMATION
  Report Type: 
  Country: None (occurrence: None)
  Receive Date: 20110819
  Receipt Date: 20110816
  Transmission Date: 20111222
  Serious: No
  Sender: FDA-Public Use
  Company Number: US-PFIZER INC-2011132536

PATIENT
  Sex: Male

DRUGS (6)
  1. COREG [Concomitant]
     Indication: HYPERTENSION
     Dosage: UNK
  2. MICARDIS [Concomitant]
     Indication: HYPERTENSION
     Dosage: UNK
  3. LYRICA [Suspect]
     Indication: NEURALGIA
     Dosage: 75 MG, 2X/DAY
     Route: 048
     Dates: start: 20090724, end: 20110601
  4. METHOCARBAMOL [Concomitant]
     Dosage: UNK
  5. PERCOCET [Concomitant]
     Dosage: UNK
  6. CLONIDINE [Concomitant]
     Indication: HYPERTENSION
     Dosage: UNK

REACTIONS (2)
  - RASH MACULAR [None]
  - MUSCLE SPASMS [None]
